FAERS Safety Report 13625550 (Version 1)
Quarter: 2017Q2

REPORT INFORMATION
  Report Type: Spontaneous
  Country: CA (occurrence: CA)
  Receive Date: 20170607
  Receipt Date: 20170607
  Transmission Date: 20170830
  Serious: Yes (Life-Threatening, Hospitalization, Other)
  Sender: FDA-Public Use
  Company Number: CA-PFIZER INC-2017198750

PATIENT
  Age: 53 Year
  Sex: Female
  Weight: 66 kg

DRUGS (3)
  1. PALBOCICLIB [Suspect]
     Active Substance: PALBOCICLIB
     Indication: ENDOCRINE DISORDER
     Dosage: 125 MG, CYCLIC (EVERY 21 DAYS ON 28 DAYS)
     Route: 048
     Dates: start: 20161214
  2. LETROZOLE. [Concomitant]
     Active Substance: LETROZOLE
     Indication: METASTATIC NEOPLASM
     Dosage: 2.5 MG, UNK
     Route: 048
     Dates: start: 20161216
  3. DENOSUMAB [Concomitant]
     Active Substance: DENOSUMAB
     Indication: METASTASES TO BONE
     Dosage: 120 MG, UNK
     Route: 058
     Dates: start: 20140624, end: 20170222

REACTIONS (6)
  - White blood cell count decreased [Unknown]
  - Retroperitoneal haemorrhage [Unknown]
  - Anaemia [Unknown]
  - Atypical pneumonia [Recovered/Resolved]
  - Thrombocytopenia [Unknown]
  - Tachycardia [Unknown]

NARRATIVE: CASE EVENT DATE: 20170406
